FAERS Safety Report 10774770 (Version 3)
Quarter: 2019Q4

REPORT INFORMATION
  Report Type: Spontaneous
  Country: CA (occurrence: CA)
  Receive Date: 20150209
  Receipt Date: 20191014
  Transmission Date: 20200122
  Serious: Yes (Other)
  Sender: FDA-Public Use
  Company Number: CA-ROCHE-1533793

PATIENT
  Age: 53 Year
  Sex: Female
  Weight: 88 kg

DRUGS (21)
  1. XYLOCAINE [Suspect]
     Active Substance: LIDOCAINE HYDROCHLORIDE
     Indication: PRODUCT USED FOR UNKNOWN INDICATION
     Route: 065
  2. PROLIA [Concomitant]
     Active Substance: DENOSUMAB
  3. REACTINE [CETIRIZINE HYDROCHLORIDE] [Concomitant]
     Active Substance: CETIRIZINE HYDROCHLORIDE
     Indication: PREMEDICATION
  4. ACETAMINOPHEN. [Concomitant]
     Active Substance: ACETAMINOPHEN
     Indication: PREMEDICATION
     Route: 048
  5. MSM [METHYLSULFONYLMETHANE] [Concomitant]
  6. OMNARIS [Concomitant]
     Active Substance: CICLESONIDE
     Route: 065
  7. RAMIPRIL. [Concomitant]
     Active Substance: RAMIPRIL
  8. SINGULAIR [Concomitant]
     Active Substance: MONTELUKAST SODIUM
     Route: 048
  9. RITUXAN [Suspect]
     Active Substance: RITUXIMAB
     Indication: RHEUMATOID ARTHRITIS
     Route: 042
  10. XYLOCAINE [Suspect]
     Active Substance: LIDOCAINE HYDROCHLORIDE
     Route: 065
  11. METHYLPREDNISOLONE. [Concomitant]
     Active Substance: METHYLPREDNISOLONE
     Indication: PREMEDICATION
     Route: 042
  12. OXYBUTYNIN HYDROCHLORIDE [Concomitant]
     Active Substance: OXYBUTYNIN CHLORIDE
  13. METOPROLOL TARTRATE. [Concomitant]
     Active Substance: METOPROLOL TARTRATE
     Route: 065
  14. CIPROFLOXACIN. [Concomitant]
     Active Substance: CIPROFLOXACIN
     Route: 048
  15. DEPO-MEDROL [Suspect]
     Active Substance: METHYLPREDNISOLONE ACETATE
     Indication: PRODUCT USED FOR UNKNOWN INDICATION
     Route: 014
  16. MYRBETRIQ [Concomitant]
     Active Substance: MIRABEGRON
     Dosage: TABLET (EXTENDED-RELEASE)
     Route: 065
  17. PREDNISONE. [Concomitant]
     Active Substance: PREDNISONE
  18. RABEPRAZOLE [Concomitant]
     Active Substance: RABEPRAZOLE
     Indication: OSTEOARTHRITIS
     Dosage: PRE-FILLED SYRINGE. PRESERVATIVE-FREE; SOLUTION SUBCUTANEOUS
     Route: 058
  19. NIFEDIPINE. [Concomitant]
     Active Substance: NIFEDIPINE
  20. PILOCARPINE HYDROCHLORIDE. [Concomitant]
     Active Substance: PILOCARPINE HYDROCHLORIDE
  21. LIDOCAINE HYDROCHLORIDE. [Concomitant]
     Active Substance: LIDOCAINE HYDROCHLORIDE
     Route: 048

REACTIONS (26)
  - Joint instability [Not Recovered/Not Resolved]
  - Hepatitis B core antibody positive [Not Recovered/Not Resolved]
  - Hepatitis B virus test positive [Not Recovered/Not Resolved]
  - Inflammatory pain [Not Recovered/Not Resolved]
  - Drug ineffective [Unknown]
  - Weight increased [Not Recovered/Not Resolved]
  - Bone pain [Not Recovered/Not Resolved]
  - Poor quality sleep [Not Recovered/Not Resolved]
  - Joint swelling [Not Recovered/Not Resolved]
  - Blood cholesterol increased [Not Recovered/Not Resolved]
  - Synovitis [Not Recovered/Not Resolved]
  - Fall [Unknown]
  - Mobility decreased [Not Recovered/Not Resolved]
  - Musculoskeletal disorder [Not Recovered/Not Resolved]
  - Pain [Not Recovered/Not Resolved]
  - Burning sensation [Not Recovered/Not Resolved]
  - Cystitis [Not Recovered/Not Resolved]
  - Osteoarthritis [Not Recovered/Not Resolved]
  - Osteopenia [Not Recovered/Not Resolved]
  - Arthropathy [Not Recovered/Not Resolved]
  - Gait disturbance [Not Recovered/Not Resolved]
  - Diabetes mellitus [Not Recovered/Not Resolved]
  - Open fracture [Not Recovered/Not Resolved]
  - Arthralgia [Not Recovered/Not Resolved]
  - Fatigue [Not Recovered/Not Resolved]
  - Sinusitis [Not Recovered/Not Resolved]
